FAERS Safety Report 11704471 (Version 1)
Quarter: 2015Q4

REPORT INFORMATION
  Report Type: Spontaneous
  Country: US (occurrence: US)
  Receive Date: 20151106
  Receipt Date: 20151106
  Transmission Date: 20160304
  Serious: Yes (Other)
  Sender: FDA-Public Use
  Company Number: US-PFIZER INC-2015365410

PATIENT
  Age: 34 Year
  Sex: Female

DRUGS (2)
  1. IBRANCE [Suspect]
     Active Substance: PALBOCICLIB
     Indication: BREAST CANCER
     Dosage: 125 MG, DAILY FOR 21 DAYS AND THEN BE OFF FOR 7 DAYS
     Route: 048
     Dates: start: 20150903
  2. IBRANCE [Suspect]
     Active Substance: PALBOCICLIB
     Dosage: 100 MG, DAILY 21 DAYS AND THEN BE OFF FOR 7 DAYS
     Route: 048
     Dates: start: 20151014

REACTIONS (4)
  - Neutropenia [Recovered/Resolved]
  - Paraesthesia [Recovered/Resolved]
  - Limb discomfort [Recovered/Resolved]
  - Aphthous ulcer [Recovered/Resolved]

NARRATIVE: CASE EVENT DATE: 201509
